FAERS Safety Report 11334107 (Version 1)
Quarter: 2015Q3

REPORT INFORMATION
  Report Type: Spontaneous
  Country: US (occurrence: US)
  Receive Date: 20150803
  Receipt Date: 20150803
  Transmission Date: 20151125
  Serious: No
  Sender: FDA-Public Use
  Company Number: CHPA2015US009131

PATIENT
  Age: 69 Year
  Sex: Female

DRUGS (2)
  1. VOLTAREN [Suspect]
     Active Substance: DICLOFENAC SODIUM
     Indication: PAIN IN EXTREMITY
     Route: 061
  2. EXCEDRIN EXTRA STRENGTH [Suspect]
     Active Substance: ACETAMINOPHEN\ASPIRIN\CAFFEINE
     Indication: PAIN IN EXTREMITY
     Route: 065

REACTIONS (5)
  - Product use issue [Unknown]
  - Drug administered at inappropriate site [Unknown]
  - Drug ineffective [Unknown]
  - Therapeutic response unexpected [Unknown]
  - Drug dispensed to wrong patient [Unknown]
